FAERS Safety Report 7621499-3 (Version None)
Quarter: 2011Q3

REPORT INFORMATION
  Report Type: 
  Country: None (occurrence: None)
  Receive Date: 20110719
  Receipt Date: 20110711
  Transmission Date: 20111222
  Serious: Yes (Hospitalization, Other)
  Sender: FDA-Public Use
  Company Number: FR-ABBOTT-11P-056-0837452-00

PATIENT
  Sex: Male

DRUGS (6)
  1. HUMIRA [Suspect]
     Indication: RHEUMATOID ARTHRITIS
     Route: 058
     Dates: start: 20090501, end: 20110401
  2. ETANERCEPT [Suspect]
     Indication: PSORIATIC ARTHROPATHY
  3. ETANERCEPT [Suspect]
     Indication: RHEUMATOID ARTHRITIS
     Dosage: 4 COURSES OF 6 MONTHS. 50 MG TWICE A WEEK AND THEN 1DF PER WEEK DURING 6 MONTHS
     Route: 058
     Dates: start: 20060201, end: 20090401
  4. HUMIRA [Suspect]
     Indication: PSORIATIC ARTHROPATHY
  5. METHOTREXATE [Suspect]
     Indication: RHEUMATOID ARTHRITIS
     Dosage: 7.5 TO 10 MG PER WEEK, CUMULATED DOSE } 3G
     Dates: start: 20000101, end: 20060201
  6. METHOTREXATE [Suspect]
     Indication: PSORIATIC ARTHROPATHY

REACTIONS (4)
  - MALIGNANT MELANOMA IN SITU [None]
  - PSORIATIC ARTHROPATHY [None]
  - SKIN LESION [None]
  - MALIGNANT MELANOMA [None]
